FAERS Safety Report 21208805 (Version 1)
Quarter: 2022Q3

REPORT INFORMATION
  Report Type: Spontaneous
  Country: FR (occurrence: RE)
  Receive Date: 20220812
  Receipt Date: 20220812
  Transmission Date: 20221027
  Serious: Yes (Hospitalization)
  Sender: FDA-Public Use
  Company Number: None

PATIENT
  Age: 47 Year
  Sex: Female
  Weight: 61.7 kg

DRUGS (13)
  1. ETHINYL ESTRADIOL\LEVONORGESTREL [Suspect]
     Active Substance: ETHINYL ESTRADIOL\LEVONORGESTREL
     Indication: Contraception
     Dosage: 1 DF, 1X/DAY
     Route: 048
     Dates: start: 20220629, end: 20220719
  2. AMLODIPINE BESYLATE [Suspect]
     Active Substance: AMLODIPINE BESYLATE
     Dosage: 10 MG, 1X/DAY (IN THE MORNING)
     Route: 048
     Dates: end: 20220719
  3. CLINDAMYCIN [Suspect]
     Active Substance: CLINDAMYCIN
     Indication: Arthritis bacterial
     Dosage: 600 MG, 3X/DAY (600 MG MORNING, NOON, EVENING)
     Route: 048
     Dates: start: 20220711, end: 20220719
  4. DOLIPRANE [Suspect]
     Active Substance: ACETAMINOPHEN
     Indication: Analgesic intervention supportive therapy
     Dosage: 1 G, AS NEEDED (MAX 4G/DAY)
     Route: 048
     Dates: start: 20220630, end: 20220712
  5. AMOXICILLIN [Suspect]
     Active Substance: AMOXICILLIN
     Indication: Arthritis bacterial
     Dosage: 2 G, 4X/DAY
     Route: 042
     Dates: start: 20220628, end: 20220709
  6. ORAMORPH SR SUSTAINED RELEASE [Concomitant]
     Active Substance: MORPHINE SULFATE
     Indication: Analgesic intervention supportive therapy
     Dosage: 10 MG, AS NEEDED (MAX 60 MG) IF VISUAL ANALOGUE SCALE DESPITE OTHER ANALGESICS
     Route: 048
     Dates: start: 20220706, end: 20220710
  7. LEVOFLOXACIN [Concomitant]
     Active Substance: LEVOFLOXACIN
     Indication: Thrombosis prophylaxis
     Dosage: 4000 UI/J
     Route: 058
     Dates: start: 20220701
  8. PHLOROGLUCINOL [Concomitant]
     Active Substance: PHLOROGLUCINOL
     Indication: Abdominal pain
     Dosage: 160 MG, DAILY (160MG MAX 3 TIMES A DAY)
     Route: 048
     Dates: start: 20220716, end: 20220719
  9. POTASSIUM CHLORIDE [Concomitant]
     Active Substance: POTASSIUM CHLORIDE
     Indication: Mineral supplementation
     Dosage: FUNCTION OF SERUM POTASSIUM
     Route: 048
     Dates: start: 20220701, end: 20220709
  10. CETIRIZINE [Concomitant]
     Active Substance: CETIRIZINE HYDROCHLORIDE
     Dosage: 10 MG, 1X/DAY (IN THE MORNING)
     Route: 048
     Dates: start: 20220701, end: 20220719
  11. TRAMADOL [Concomitant]
     Active Substance: TRAMADOL
     Indication: Analgesic intervention supportive therapy
     Dosage: 50 MG, AS NEEDED (MAX 200MG/D)
     Route: 048
     Dates: start: 20220708, end: 20220712
  12. ACUPAN [Concomitant]
     Active Substance: NEFOPAM HYDROCHLORIDE
     Indication: Analgesic intervention supportive therapy
     Dosage: 20 MG, AS NEEDED (MAX 120MG / DAY)
     Route: 048
     Dates: start: 20220629, end: 20220703
  13. TRAMADOL HYDROCHLORIDE [Concomitant]
     Active Substance: TRAMADOL HYDROCHLORIDE
     Indication: Analgesic intervention supportive therapy
     Dosage: MORNING AND EVENING
     Route: 048
     Dates: start: 20220630, end: 20220712

REACTIONS (1)
  - Hepatic cytolysis [Not Recovered/Not Resolved]

NARRATIVE: CASE EVENT DATE: 20220710
